FAERS Safety Report 9451623 (Version 2)
Quarter: 2013Q3

REPORT INFORMATION
  Report Type: Spontaneous
  Country: US (occurrence: US)
  Receive Date: 20130811
  Receipt Date: 20130906
  Transmission Date: 20140515
  Serious: No
  Sender: FDA-Public Use
  Company Number: US-B.I. PHARMACEUTICALS,INC./RIDGEFIELD-2013-BI-23545BP

PATIENT
  Sex: Female
  Weight: 250 kg

DRUGS (5)
  1. PRADAXA [Suspect]
     Indication: ATRIAL FIBRILLATION
     Dosage: 150 MG
     Route: 048
     Dates: start: 2011
  2. PRADAXA [Suspect]
     Dosage: 300 MG
     Route: 048
     Dates: start: 2011
  3. DILTIAZEM [Concomitant]
     Indication: HYPERTENSION
     Dosage: 240 MG
     Route: 048
  4. METOPROLOL [Concomitant]
     Indication: HYPERTENSION
     Dosage: 25 MG
     Route: 048
  5. ANASTROZOLE [Concomitant]
     Indication: BREAST CANCER
     Dosage: 1 MG
     Route: 048

REACTIONS (2)
  - Rectal haemorrhage [Not Recovered/Not Resolved]
  - Renal failure [Not Recovered/Not Resolved]
